FAERS Safety Report 13882346 (Version 1)
Quarter: 2017Q3

REPORT INFORMATION
  Report Type: Spontaneous
  Country: US (occurrence: US)
  Receive Date: 20170818
  Receipt Date: 20170818
  Transmission Date: 20171127
  Serious: Yes (Life-Threatening, Hospitalization, Other)
  Sender: FDA-Public Use
  Company Number: US-LUPIN PHARMACEUTICALS INC.-2017-04612

PATIENT
  Age: 25 Month
  Sex: Male

DRUGS (1)
  1. MORPHINE [Suspect]
     Active Substance: MORPHINE
     Indication: PAIN
     Dosage: UNK
     Route: 065

REACTIONS (4)
  - Toxicity to various agents [Recovered/Resolved]
  - Brain oedema [Recovered/Resolved]
  - Hydrocephalus [Recovered/Resolved]
  - Accidental overdose [Unknown]
